FAERS Safety Report 13892079 (Version 1)
Quarter: 2017Q3

REPORT INFORMATION
  Report Type: Spontaneous
  Country: NL (occurrence: NL)
  Receive Date: 20170822
  Receipt Date: 20170822
  Transmission Date: 20171127
  Serious: Yes (Hospitalization)
  Sender: FDA-Public Use
  Company Number: NL-TEVA-797311ACC

PATIENT
  Age: 10 Year
  Sex: Female
  Weight: 65 kg

DRUGS (1)
  1. SALBUTAMOL 100 REDIHALER 100MCG/DO SPB 200D+INH [Suspect]
     Active Substance: ALBUTEROL
     Indication: ASTHMA
     Dosage: 3 DOSAGE FORMS DAILY;
     Route: 055
     Dates: start: 20110404, end: 201703

REACTIONS (4)
  - Mental disorder [Recovered/Resolved]
  - Palpitations [Recovered/Resolved]
  - Anxiety [Recovered/Resolved]
  - Tremor [Recovered/Resolved]

NARRATIVE: CASE EVENT DATE: 20110711
